FAERS Safety Report 13502689 (Version 2)
Quarter: 2017Q2

REPORT INFORMATION
  Report Type: Spontaneous
  Country: US (occurrence: US)
  Receive Date: 20170502
  Receipt Date: 20170504
  Transmission Date: 20170830
  Serious: Yes (Hospitalization)
  Sender: FDA-Public Use
  Company Number: US-FRESENIUS KABI-FK201703351

PATIENT
  Age: 48 Year
  Sex: Female

DRUGS (1)
  1. SMOFLIPID [Suspect]
     Active Substance: FISH OIL\MEDIUM-CHAIN TRIGLYCERIDES\OLIVE OIL\SOYBEAN OIL
     Indication: PARENTERAL NUTRITION
     Route: 041

REACTIONS (5)
  - Asthenia [Unknown]
  - Dyspnoea [Unknown]
  - Abdominal pain [Unknown]
  - Lung infiltration [Unknown]
  - Vomiting [Unknown]
